FAERS Safety Report 22399996 (Version 1)
Quarter: 2023Q2

REPORT INFORMATION
  Report Type: Spontaneous
  Country: US (occurrence: None)
  Receive Date: 20230602
  Receipt Date: 20230602
  Transmission Date: 20230722
  Serious: Yes (Other)
  Sender: FDA-Public Use
  Company Number: US-ROCHE-3357905

PATIENT
  Age: 60 Year
  Sex: Female

DRUGS (2)
  1. OCRELIZUMAB [Suspect]
     Active Substance: OCRELIZUMAB
     Indication: Product used for unknown indication
     Route: 042
     Dates: start: 20230404
  2. SHINGRIX [Suspect]
     Active Substance: RECOMBINANT VARICELLA ZOSTER VIRUS (VZV) GLYCOPROTEIN E
     Indication: Product used for unknown indication
     Route: 065
     Dates: start: 20230518

REACTIONS (6)
  - Asthenia [Recovering/Resolving]
  - Vaccination site warmth [Recovering/Resolving]
  - Gait disturbance [Unknown]
  - Fall [Unknown]
  - Sleep disorder [Unknown]
  - Vaccination site pain [Recovering/Resolving]
